FAERS Safety Report 4387401-5 (Version None)
Quarter: 2004Q2

REPORT INFORMATION
  Report Type: 
  Country: None (occurrence: None)
  Receive Date: 20040630
  Receipt Date: 20040421
  Transmission Date: 20050107
  Serious: No
  Sender: FDA-Public Use
  Company Number: US-GLAXOSMITHKLINE-A0507918A

PATIENT
  Sex: Female

DRUGS (4)
  1. ADVAIR HFA [Suspect]
     Indication: ASTHMA
     Dosage: 1BLS TWICE PER DAY
     Route: 055
     Dates: start: 20040101
  2. SINGULAIR [Concomitant]
  3. VENTOLIN [Concomitant]
  4. ZANTAC [Concomitant]

REACTIONS (4)
  - DYSPNOEA [None]
  - HOARSENESS [None]
  - ORAL CANDIDIASIS [None]
  - RESPIRATORY RATE INCREASED [None]
